FAERS Safety Report 16923736 (Version 2)
Quarter: 2020Q1

REPORT INFORMATION
  Report Type: Spontaneous
  Country: GB (occurrence: GB)
  Receive Date: 20191016
  Receipt Date: 20200201
  Transmission Date: 20200409
  Serious: Yes (Death, Other)
  Sender: FDA-Public Use
  Company Number: GB-ACCORD-157748

PATIENT
  Age: 75 Year
  Sex: Male

DRUGS (12)
  1. APIXABAN [Suspect]
     Active Substance: APIXABAN
     Indication: ANTICOAGULANT THERAPY
     Route: 048
     Dates: start: 20190919, end: 20190922
  2. EPILIM [Concomitant]
     Active Substance: VALPROATE SODIUM
  3. TEMAZEPAM. [Concomitant]
     Active Substance: TEMAZEPAM
  4. ACETYLSALICYLIC ACID [Concomitant]
     Active Substance: ASPIRIN
  5. ATORVASTATIN [Concomitant]
     Active Substance: ATORVASTATIN
  6. CLOPIDOGREL [Suspect]
     Active Substance: CLOPIDOGREL BISULFATE
     Indication: ANTIPLATELET THERAPY
     Dosage: MORNING
     Route: 048
     Dates: start: 20180918, end: 20190920
  7. PHENYTOIN. [Concomitant]
     Active Substance: PHENYTOIN
  8. FENTANYL. [Concomitant]
     Active Substance: FENTANYL
  9. BISOPROLOL [Concomitant]
     Active Substance: BISOPROLOL
  10. CANDESARTAN. [Concomitant]
     Active Substance: CANDESARTAN
  11. GLYCERYL TRINITRATE [Concomitant]
     Active Substance: NITROGLYCERIN
  12. AMITRIPTYLINE [Concomitant]
     Active Substance: AMITRIPTYLINE

REACTIONS (3)
  - Haematuria [Not Recovered/Not Resolved]
  - Haemorrhage [Not Recovered/Not Resolved]
  - Cardiac arrest [Fatal]

NARRATIVE: CASE EVENT DATE: 20190918
